FAERS Safety Report 9526768 (Version 2)
Quarter: 2013Q4

REPORT INFORMATION
  Report Type: Spontaneous
  Country: US (occurrence: US)
  Receive Date: 20130916
  Receipt Date: 20131004
  Transmission Date: 20140711
  Serious: Yes (Hospitalization)
  Sender: FDA-Public Use
  Company Number: US-GLAXOSMITHKLINE-A1041184A

PATIENT
  Sex: Female

DRUGS (4)
  1. ADVAIR [Suspect]
     Indication: CHRONIC OBSTRUCTIVE PULMONARY DISEASE
     Dosage: 1PUFF PER DAY
     Route: 055
  2. SPIRIVA [Concomitant]
  3. SINGULAIR [Concomitant]
  4. ALBUTEROL INHALER [Concomitant]

REACTIONS (6)
  - Drug administration error [Unknown]
  - Increased upper airway secretion [Unknown]
  - Retching [Unknown]
  - Pharyngeal disorder [Unknown]
  - Chronic obstructive pulmonary disease [Unknown]
  - Dysphagia [Unknown]
